FAERS Safety Report 5377564-7 (Version None)
Quarter: 2007Q2

REPORT INFORMATION
  Report Type: 
  Country: None (occurrence: None)
  Receive Date: 20070530
  Receipt Date: 20070301
  Transmission Date: 20071010
  Serious: No
  Sender: FDA-Public Use
  Company Number: 2007PV030901

PATIENT
  Age: 66 Year
  Sex: Female

DRUGS (2)
  1. BYETTA [Suspect]
     Indication: DIABETES MELLITUS NON-INSULIN-DEPENDENT
     Dosage: 5 MCG;BID;SC
     Route: 058
     Dates: start: 20070227, end: 20070227
  2. BYETTA [Suspect]
     Indication: WEIGHT DECREASED
     Dosage: 5 MCG;BID;SC
     Route: 058
     Dates: start: 20070227, end: 20070227

REACTIONS (6)
  - BREAST PAIN [None]
  - FLATULENCE [None]
  - INJECTION SITE PAIN [None]
  - MALAISE [None]
  - MUSCULOSKELETAL CHEST PAIN [None]
  - VOMITING [None]
